FAERS Safety Report 14399151 (Version 2)
Quarter: 2018Q2

REPORT INFORMATION
  Report Type: Spontaneous
  Country: US (occurrence: US)
  Receive Date: 20180117
  Receipt Date: 20180629
  Transmission Date: 20180711
  Serious: Yes (Hospitalization)
  Sender: FDA-Public Use
  Company Number: US-JNJFOC-20171225956

PATIENT
  Age: 52 Year
  Sex: Male

DRUGS (6)
  1. XARELTO [Suspect]
     Active Substance: RIVAROXABAN
     Indication: CEREBROVASCULAR ACCIDENT PROPHYLAXIS
     Route: 048
     Dates: start: 20141219, end: 20141221
  2. XARELTO [Suspect]
     Active Substance: RIVAROXABAN
     Indication: ATRIAL FLUTTER
     Route: 048
     Dates: start: 20141219, end: 20141221
  3. XARELTO [Suspect]
     Active Substance: RIVAROXABAN
     Indication: THROMBOSIS PROPHYLAXIS
     Route: 048
     Dates: start: 20141219, end: 20141221
  4. ASPIRIN. [Suspect]
     Active Substance: ASPIRIN
     Indication: ATRIAL FLUTTER
     Route: 048
     Dates: start: 20141219, end: 20141221
  5. ASPIRIN. [Suspect]
     Active Substance: ASPIRIN
     Indication: ATRIAL FLUTTER
     Route: 048
     Dates: start: 20141230
  6. XARELTO [Suspect]
     Active Substance: RIVAROXABAN
     Indication: ATRIAL FIBRILLATION
     Route: 048
     Dates: start: 20141219, end: 20141221

REACTIONS (3)
  - Acute kidney injury [Recovering/Resolving]
  - Duodenal ulcer haemorrhage [Recovering/Resolving]
  - Hypovolaemic shock [Recovering/Resolving]

NARRATIVE: CASE EVENT DATE: 20141221
